FAERS Safety Report 10178704 (Version 2)
Quarter: 2014Q3

REPORT INFORMATION
  Report Type: Spontaneous
  Country: FR (occurrence: FR)
  Receive Date: 20140519
  Receipt Date: 20140904
  Transmission Date: 20150326
  Serious: Yes (Death, Hospitalization)
  Sender: FDA-Public Use
  Company Number: FR-BIOGENIDEC-2014BI043187

PATIENT
  Age: 59 Year
  Sex: Female

DRUGS (6)
  1. ENDOXAN [Concomitant]
     Active Substance: CYCLOPHOSPHAMIDE
     Indication: MULTIPLE SCLEROSIS
     Route: 042
     Dates: start: 201102, end: 201108
  2. TYSABRI [Suspect]
     Active Substance: NATALIZUMAB
     Indication: MULTIPLE SCLEROSIS
     Route: 042
     Dates: start: 200909, end: 201009
  3. DOXORUBICIN [Concomitant]
     Active Substance: DOXORUBICIN
     Dates: end: 20140612
  4. HOLOXAN [Concomitant]
     Active Substance: IFOSFAMIDE
  5. CELLCEPT [Concomitant]
     Active Substance: MYCOPHENOLATE MOFETIL\MYCOPHENOLATE MOFETIL HYDROCHLORIDE
     Dates: start: 201111
  6. CELLCEPT [Concomitant]
     Active Substance: MYCOPHENOLATE MOFETIL\MYCOPHENOLATE MOFETIL HYDROCHLORIDE
     Dates: start: 201303

REACTIONS (3)
  - Cardiac failure [Fatal]
  - Cardiogenic shock [Fatal]
  - Synovial sarcoma [Not Recovered/Not Resolved]

NARRATIVE: CASE EVENT DATE: 201312
